FAERS Safety Report 14394531 (Version 1)
Quarter: 2018Q1

REPORT INFORMATION
  Report Type: Spontaneous
  Country: US (occurrence: US)
  Receive Date: 20180116
  Receipt Date: 20180116
  Transmission Date: 20180509
  Serious: No
  Sender: FDA-Public Use
  Company Number: US-IMPAX LABORATORIES, INC-2017-IPXL-00581

PATIENT
  Sex: Female

DRUGS (2)
  1. BUPROPION XL [Suspect]
     Active Substance: BUPROPION
     Indication: DEPRESSION
  2. BUPROPION XL [Suspect]
     Active Substance: BUPROPION
     Indication: ANXIETY
     Dosage: 150 MG, UNK
     Route: 065

REACTIONS (2)
  - Anxiety [Unknown]
  - Drug ineffective for unapproved indication [Unknown]
